FAERS Safety Report 5604231-4 (Version None)
Quarter: 2008Q1

REPORT INFORMATION
  Report Type: 
  Country: None (occurrence: None)
  Receive Date: 20080128
  Receipt Date: 20080122
  Transmission Date: 20080703
  Serious: Yes (Disabling)
  Sender: FDA-Public Use
  Company Number: JP-BRISTOL-MYERS SQUIBB COMPANY-14008767

PATIENT
  Age: 67 Year
  Sex: Female

DRUGS (3)
  1. TAXOL [Suspect]
     Indication: OVARIAN CANCER
     Route: 041
     Dates: start: 20070726, end: 20070726
  2. PACLITAXEL [Suspect]
     Indication: OVARIAN CANCER
     Dosage: ALSO 180 MG/DAY ON 11-OCT-07
     Route: 041
     Dates: start: 20070816, end: 20070913
  3. CARBOMERCK [Suspect]
     Dosage: ALSO 400MG ON 11-OCT-2007
     Route: 041
     Dates: start: 20070726, end: 20070913

REACTIONS (1)
  - SCLERODERMA [None]
